FAERS Safety Report 6613828-4 (Version None)
Quarter: 2010Q1

REPORT INFORMATION
  Report Type: 
  Country: None (occurrence: None)
  Receive Date: 20100225
  Receipt Date: 20100210
  Transmission Date: 20100710
  Serious: Yes (Life-Threatening, Hospitalization)
  Sender: FDA-Public Use
  Company Number: 2009000822

PATIENT
  Age: 73 Year
  Sex: Male

DRUGS (11)
  1. ERLOTINIB (ERLOTINIB) (TABLET) (ERLOTINIB) [Suspect]
     Indication: NON-SMALL CELL LUNG CANCER
     Dosage: (150 MG,12X PER 21 DAY),ORAL
     Route: 048
     Dates: start: 20090114, end: 20090219
  2. DOCETAXEL [Suspect]
     Indication: NON-SMALL CELL LUNG CANCER
     Dosage: (350 MG,1X PER 21 DAY),INTRAVENOUS
     Route: 042
     Dates: start: 20090128
  3. MEDROL [Concomitant]
  4. ZANTAC 150 [Concomitant]
  5. CETIRIZINE HCL [Concomitant]
  6. LANTUS [Concomitant]
  7. COAPROVEL (KARVEA HCT) [Concomitant]
  8. ZOFRON (ONDANSETRON HYDROCHLORIDE) [Concomitant]
  9. DECADRON [Concomitant]
  10. FENISTIL (DIMETINDENE MALEATE) [Concomitant]
  11. DIOVAN HCT [Concomitant]

REACTIONS (6)
  - ANAEMIA [None]
  - DIZZINESS [None]
  - FATIGUE [None]
  - INFECTION [None]
  - PO2 DECREASED [None]
  - PYREXIA [None]
